FAERS Safety Report 23734909 (Version 2)
Quarter: 2025Q2

REPORT INFORMATION
  Report Type: Spontaneous
  Country: US (occurrence: US)
  Receive Date: 20240412
  Receipt Date: 20250520
  Transmission Date: 20250717
  Serious: Yes (Other)
  Sender: TAKEDA
  Company Number: US-TAKEDA-2024TUS033429

PATIENT
  Age: 68 Year
  Sex: Female
  Weight: 61 kg

DRUGS (33)
  1. VELCADE [Suspect]
     Active Substance: BORTEZOMIB
     Indication: Light chain disease
  2. DEXAMETHASONE [Suspect]
     Active Substance: DEXAMETHASONE
     Indication: Light chain disease
     Dosage: 20 MILLIGRAM, 1/WEEK
     Dates: start: 20231106
  3. DEXAMETHASONE SODIUM PHOSPHATE [Suspect]
     Active Substance: DEXAMETHASONE SODIUM PHOSPHATE
     Indication: Light chain disease
  4. TREPROSTINIL [Suspect]
     Active Substance: TREPROSTINIL
     Indication: Pulmonary arterial hypertension
     Dosage: 3 MILLIGRAM, TID
     Dates: start: 20240126
  5. ORENITRAM [Suspect]
     Active Substance: TREPROSTINIL
     Indication: Pulmonary arterial hypertension
  6. ORENITRAM [Suspect]
     Active Substance: TREPROSTINIL
     Dosage: 3.25 MILLIGRAM, TID
     Dates: start: 20240616
  7. ORENITRAM [Suspect]
     Active Substance: TREPROSTINIL
  8. ORENITRAM [Suspect]
     Active Substance: TREPROSTINIL
     Dosage: 3 MILLIGRAM, Q8HR
     Dates: start: 202406, end: 2024
  9. REVLIMID [Suspect]
     Active Substance: LENALIDOMIDE
     Indication: Light chain disease
     Dosage: 25 MILLIGRAM, QD
     Dates: start: 20240205
  10. DARZALEX [Suspect]
     Active Substance: DARATUMUMAB
     Indication: Light chain disease
  11. MORPHINE SULFATE [Suspect]
     Active Substance: MORPHINE SULFATE
     Indication: Bone pain
     Dosage: 15 MILLIGRAM, BID
  12. DARATUMUMAB [Suspect]
     Active Substance: DARATUMUMAB
     Indication: Light chain disease
  13. LENALIDOMIDE [Suspect]
     Active Substance: LENALIDOMIDE
     Indication: Light chain disease
  14. OPSUMIT [Suspect]
     Active Substance: MACITENTAN
     Indication: Product used for unknown indication
  15. Micro K [Concomitant]
  16. REMERON [Concomitant]
     Active Substance: MIRTAZAPINE
  17. VITAMIN D3 [Concomitant]
     Active Substance: CHOLECALCIFEROL
  18. ADCIRCA [Concomitant]
     Active Substance: TADALAFIL
  19. ADCIRCA [Concomitant]
     Active Substance: TADALAFIL
  20. LIPITOR [Concomitant]
     Active Substance: ATORVASTATIN CALCIUM
  21. ELIQUIS [Concomitant]
     Active Substance: APIXABAN
  22. LANOXIN [Concomitant]
     Active Substance: DIGOXIN
  23. ATROPINE\DIPHENOXYLATE [Concomitant]
     Active Substance: ATROPINE\DIPHENOXYLATE
  24. DULERA [Concomitant]
     Active Substance: FORMOTEROL FUMARATE DIHYDRATE\MOMETASONE FUROATE
  25. ZOLOFT [Concomitant]
     Active Substance: SERTRALINE HYDROCHLORIDE
  26. ZOLOFT [Concomitant]
     Active Substance: SERTRALINE HYDROCHLORIDE
  27. ZOFRAN [Concomitant]
     Active Substance: ONDANSETRON HYDROCHLORIDE
  28. ZOVIRAX [Concomitant]
     Active Substance: ACYCLOVIR
  29. DELTASONE [Concomitant]
     Active Substance: PREDNISONE
  30. KLOR-CON [Concomitant]
     Active Substance: POTASSIUM CHLORIDE
  31. BENADRYL [Concomitant]
     Active Substance: DIPHENHYDRAMINE HYDROCHLORIDE
  32. OXYGEN [Concomitant]
     Active Substance: OXYGEN
  33. PULMICORT TURBUHALER [Concomitant]
     Active Substance: BUDESONIDE

REACTIONS (34)
  - Compression fracture [Not Recovered/Not Resolved]
  - Cardiogenic shock [Recovered/Resolved]
  - Cardiac failure congestive [Not Recovered/Not Resolved]
  - Pulmonary hypertension [Not Recovered/Not Resolved]
  - Hypokalaemia [Not Recovered/Not Resolved]
  - Oropharyngeal pain [Recovered/Resolved]
  - Pharyngeal swelling [Recovered/Resolved]
  - Pharyngeal erythema [Recovered/Resolved]
  - Dysphonia [Recovering/Resolving]
  - Blood pressure systolic increased [Recovered/Resolved]
  - Cancer pain [Not Recovered/Not Resolved]
  - Urine output decreased [Not Recovered/Not Resolved]
  - Skin warm [Unknown]
  - Feeling abnormal [Not Recovered/Not Resolved]
  - Dry skin [Not Recovered/Not Resolved]
  - Kyphosis [Not Recovered/Not Resolved]
  - Chronic obstructive pulmonary disease [Not Recovered/Not Resolved]
  - Bone pain [Not Recovered/Not Resolved]
  - Hypocalcaemia [Recovered/Resolved]
  - Fatigue [Not Recovered/Not Resolved]
  - Iron deficiency anaemia [Not Recovered/Not Resolved]
  - Condition aggravated [Unknown]
  - Illness [Unknown]
  - Pain [Recovering/Resolving]
  - Haemoptysis [Recovered/Resolved]
  - Abdominal pain upper [Unknown]
  - Asthenia [Not Recovered/Not Resolved]
  - Nasopharyngitis [Recovered/Resolved]
  - Back pain [Not Recovered/Not Resolved]
  - Malaise [Not Recovered/Not Resolved]
  - Diarrhoea [Not Recovered/Not Resolved]
  - Nausea [Not Recovered/Not Resolved]
  - Dyspnoea [Recovered/Resolved]
  - Drug hypersensitivity [Recovered/Resolved]

NARRATIVE: CASE EVENT DATE: 20240209
